FAERS Safety Report 21453609 (Version 1)
Quarter: 2022Q4

REPORT INFORMATION
  Report Type: Spontaneous
  Country: CN (occurrence: CN)
  Receive Date: 20221013
  Receipt Date: 20221013
  Transmission Date: 20230112
  Serious: Yes (Death)
  Sender: FDA-Public Use
  Company Number: CN-BAYER-2022A141611

PATIENT

DRUGS (1)
  1. MOXIFLOXACIN [Suspect]
     Active Substance: MOXIFLOXACIN
     Indication: Anti-infective therapy
     Dosage: UNK
     Route: 064
     Dates: start: 20201208

REACTIONS (2)
  - Tuberculosis [Fatal]
  - Foetal exposure during pregnancy [None]

NARRATIVE: CASE EVENT DATE: 20201208
